FAERS Safety Report 8913056 (Version 1)
Quarter: 2012Q4

REPORT INFORMATION
  Report Type: Spontaneous
  Country: US (occurrence: None)
  Receive Date: 20121113
  Receipt Date: 20121113
  Transmission Date: 20130627
  Serious: Yes (Hospitalization)
  Sender: FDA-Public Use
  Company Number: UTC-025086

PATIENT
  Age: 58 Year
  Sex: Female
  Weight: 81.81 kg

DRUGS (6)
  1. TYVASO (6 MICROGRAM, AEROSOL FOR INHALATION) (TREPROSTINIL SODIUM) [Suspect]
     Indication: CHRONIC PULMONARY HEART DISEASE
     Dosage: 24 mcg (12 mcg, 2 in 1 d), inhalation
     Route: 055
     Dates: start: 20121011
  2. TYVASO (6 MICROGRAM, AEROSOL FOR INHALATION) (TREPROSTINIL SODIUM) [Suspect]
     Indication: PULMONARY HYPERTENSION SECONDARY
     Dosage: 24 mcg (12 mcg, 2 in 1 d), inhalation
     Route: 055
     Dates: start: 20121011
  3. TYVASO (6 MICROGRAM, AEROSOL FOR INHALATION) (TREPROSTINIL SODIUM) [Suspect]
     Indication: CHRONIC PULMONARY HEART DISEASE
     Dosage: 36 mcg (18 mcg, 2 in 1 d), inhalation
     Route: 055
     Dates: start: 20121111
  4. TYVASO (6 MICROGRAM, AEROSOL FOR INHALATION) (TREPROSTINIL SODIUM) [Suspect]
     Indication: PULMONARY HYPERTENSION SECONDARY
     Dosage: 36 mcg (18 mcg, 2 in 1 d), inhalation
     Route: 055
     Dates: start: 20121111
  5. TYVASO (6 MICROGRAM, AEROSOL FOR INHALATION) (TREPROSTINIL SODIUM) [Suspect]
     Indication: CHRONIC PULMONARY HEART DISEASE
     Dosage: 48 mcg (12 mcg, 4 in 1 d)
     Dates: start: 20121111
  6. TYVASO (6 MICROGRAM, AEROSOL FOR INHALATION) (TREPROSTINIL SODIUM) [Suspect]
     Indication: PULMONARY HYPERTENSION SECONDARY
     Dosage: 48 mcg (12 mcg, 4 in 1 d)
     Dates: start: 20121111

REACTIONS (2)
  - Dyspnoea [None]
  - Chest discomfort [None]
